FAERS Safety Report 5999412-4 (Version None)
Quarter: 2008Q4

REPORT INFORMATION
  Report Type: 
  Country: None (occurrence: None)
  Receive Date: 20081211
  Receipt Date: 20081211
  Transmission Date: 20090506
  Serious: Yes (Death)
  Sender: FDA-Public Use
  Company Number: None

PATIENT
  Sex: Male
  Weight: 86.637 kg

DRUGS (18)
  1. ABRAXANE [Suspect]
     Indication: SMALL CELL LUNG CANCER STAGE UNSPECIFIED
     Dosage: 600 MG EVERY 3 WKS IV
     Route: 042
     Dates: start: 20081126
  2. CARBOPLATIN [Suspect]
     Indication: SMALL CELL LUNG CANCER STAGE UNSPECIFIED
     Dosage: 882 MG EVERY 3 WKS IV
     Route: 042
     Dates: start: 20081126
  3. METHADONE HCL [Concomitant]
  4. HYDROCODONE BITARTRATE [Concomitant]
  5. LYRICA [Concomitant]
  6. TIZANIDINE HCL [Concomitant]
  7. CELEBREX [Concomitant]
  8. CYMBALTA [Concomitant]
  9. LUNESTA [Concomitant]
  10. ISOSORBIDE [Concomitant]
  11. METOPROLOL TARTRATE [Concomitant]
  12. LISINOPRIL [Concomitant]
  13. ASPIRIN [Concomitant]
  14. GEMFIBROZIL [Concomitant]
  15. METFORMIN HCL [Concomitant]
  16. GLYBURIDE [Concomitant]
  17. NOVOLIN N [Concomitant]
  18. HYDROXYZINE [Concomitant]

REACTIONS (5)
  - DIARRHOEA [None]
  - LOBAR PNEUMONIA [None]
  - NAUSEA [None]
  - OESOPHAGITIS [None]
  - VOMITING [None]
